FAERS Safety Report 11038094 (Version 2)
Quarter: 2015Q2

REPORT INFORMATION
  Report Type: Spontaneous
  Country: US (occurrence: US)
  Receive Date: 20150416
  Receipt Date: 20150428
  Transmission Date: 20150821
  Serious: Yes (Death, Hospitalization, Other)
  Sender: FDA-Public Use
  Company Number: US-BAXTER-2015BAX019930

PATIENT
  Age: 42 Year
  Sex: Female

DRUGS (1)
  1. DIANEAL LOW CALCIUM PERITONEAL DIALYSIS SOLUTION WITH DEXTROSE [Suspect]
     Active Substance: CALCIUM CHLORIDE\DEXTROSE\MAGNESIUM CHLORIDE\SODIUM CHLORIDE\SODIUM LACTATE
     Indication: PERITONEAL DIALYSIS
     Route: 033
     Dates: end: 20150401

REACTIONS (7)
  - Peritonitis bacterial [Not Recovered/Not Resolved]
  - Fungal peritonitis [Not Recovered/Not Resolved]
  - Cardiac failure [Fatal]
  - No therapeutic response [Unknown]
  - Cardiac arrest [Fatal]
  - Pancreatitis [Unknown]
  - Constipation [Unknown]

NARRATIVE: CASE EVENT DATE: 20150321
